FAERS Safety Report 26130749 (Version 1)
Quarter: 2025Q4

REPORT INFORMATION
  Report Type: Spontaneous
  Country: US (occurrence: None)
  Receive Date: 20251206
  Receipt Date: 20251206
  Transmission Date: 20260118
  Serious: Yes (Death)
  Sender: FDA-CTU
  Company Number: None

PATIENT
  Age: 39 Year
  Sex: Female

DRUGS (4)
  1. COBENFY [Suspect]
     Active Substance: TROSPIUM CHLORIDE\XANOMELINE
     Indication: Schizophrenia
     Dosage: FREQUENCY : DAILY;?
     Route: 048
     Dates: start: 20251018, end: 20251107
  2. GEODON [Concomitant]
     Active Substance: ZIPRASIDONE HYDROCHLORIDE\ZIPRASIDONE MESYLATE
  3. DEPAKOTE [Concomitant]
     Active Substance: DIVALPROEX SODIUM
  4. PERPHENAZINE [Concomitant]
     Active Substance: PERPHENAZINE

REACTIONS (2)
  - Salivary hypersecretion [None]
  - Unresponsive to stimuli [None]

NARRATIVE: CASE EVENT DATE: 20251107
